FAERS Safety Report 7296494-7 (Version None)
Quarter: 2011Q1

REPORT INFORMATION
  Report Type: 
  Country: None (occurrence: None)
  Receive Date: 20110216
  Receipt Date: 20110202
  Transmission Date: 20110831
  Serious: Yes (Hospitalization, Other)
  Sender: FDA-Public Use
  Company Number: PHHY2011SE08069

PATIENT
  Sex: Male

DRUGS (5)
  1. MADOPARK [Concomitant]
  2. ELDEPRYL [Concomitant]
  3. COMTESS [Suspect]
     Indication: PARKINSON'S DISEASE
     Dosage: 200 MG, QID
     Route: 048
  4. LYSANTIN [Concomitant]
  5. SIFROL [Concomitant]

REACTIONS (2)
  - BILIARY DILATATION [None]
  - JAUNDICE [None]
